FAERS Safety Report 7422484-7 (Version None)
Quarter: 2011Q2

REPORT INFORMATION
  Report Type: 
  Country: None (occurrence: None)
  Receive Date: 20110419
  Receipt Date: 20110411
  Transmission Date: 20111010
  Serious: No
  Sender: FDA-Public Use
  Company Number: US-BIOGENIDEC-2011BI013917

PATIENT
  Age: 61 Year
  Sex: Female

DRUGS (6)
  1. TYSABRI [Suspect]
     Route: 042
  2. TYSABRI [Suspect]
     Indication: MULTIPLE SCLEROSIS
     Route: 042
     Dates: start: 20070309
  3. TYSABRI [Suspect]
     Route: 042
     Dates: start: 20060227, end: 20060227
  4. AVONEX [Concomitant]
     Indication: MULTIPLE SCLEROSIS
     Route: 030
     Dates: start: 20001029, end: 20061009
  5. AVONEX [Concomitant]
     Route: 030
     Dates: start: 20061027
  6. TYSABRI [Suspect]
     Route: 042

REACTIONS (1)
  - FATIGUE [None]
